FAERS Safety Report 5384294-4 (Version None)
Quarter: 2007Q3

REPORT INFORMATION
  Report Type: 
  Country: None (occurrence: None)
  Receive Date: 20070703
  Receipt Date: 20070302
  Transmission Date: 20080115
  Serious: Yes (Hospitalization)
  Sender: FDA-Public Use
  Company Number: 2007-BP-02381BP

PATIENT

DRUGS (1)
  1. MIRAPEX [Suspect]

REACTIONS (1)
  - DIZZINESS [None]
